FAERS Safety Report 22102421 (Version 1)
Quarter: 2023Q1

REPORT INFORMATION
  Report Type: Spontaneous
  Country: CA (occurrence: CA)
  Receive Date: 20230316
  Receipt Date: 20230316
  Transmission Date: 20230417
  Serious: Yes (Other)
  Sender: FDA-Public Use
  Company Number: CA-CELLTRION INC.-2021CA019158

PATIENT

DRUGS (14)
  1. INFLECTRA [Suspect]
     Active Substance: INFLIXIMAB-DYYB
     Indication: Ankylosing spondylitis
     Dosage: 700 MG/Q 0, 2, 6 WEEKS, THEN EVERY 8 WEEKS
     Route: 042
     Dates: start: 20170907, end: 20180528
  2. INFLECTRA [Suspect]
     Active Substance: INFLIXIMAB-DYYB
     Dosage: 600 MG, EVERY 6 WEEKS
     Route: 042
     Dates: start: 20180726, end: 20190107
  3. INFLECTRA [Suspect]
     Active Substance: INFLIXIMAB-DYYB
     Dosage: 1000 MG, EVERY 6 WEEKS
     Route: 042
     Dates: start: 20190219, end: 20190919
  4. INFLECTRA [Suspect]
     Active Substance: INFLIXIMAB-DYYB
     Dosage: 1000 MG WEEK 0 DOSE,1000 MG Q 0, 2, 6 WEEKS THEN EVERY 6 WEEKS
     Route: 042
     Dates: start: 20210125, end: 20210125
  5. INFLECTRA [Suspect]
     Active Substance: INFLIXIMAB-DYYB
     Dosage: 1000MG, WEEK 2 DOSE
     Route: 042
     Dates: start: 20210222, end: 20210222
  6. INFLECTRA [Suspect]
     Active Substance: INFLIXIMAB-DYYB
     Dosage: 1000 MG, EVERY 6 WEEKS
     Route: 042
     Dates: start: 20210419
  7. INFLECTRA [Suspect]
     Active Substance: INFLIXIMAB-DYYB
     Dosage: 1000 MG, EVERY 6 WEEKS
     Route: 042
     Dates: start: 20211004
  8. INFLECTRA [Suspect]
     Active Substance: INFLIXIMAB-DYYB
     Dosage: 1000 MG, EVERY 6 WEEKS
     Route: 042
     Dates: start: 20211228
  9. INFLECTRA [Suspect]
     Active Substance: INFLIXIMAB-DYYB
     Dosage: 1000 MG, EVERY 6 WEEKS
     Route: 042
     Dates: start: 20221201
  10. AVALIDE [Concomitant]
     Active Substance: HYDROCHLOROTHIAZIDE\IRBESARTAN
     Dosage: 125 MG, 1X/DAY
     Route: 048
     Dates: start: 2005
  11. DILANTIN [Concomitant]
     Active Substance: PHENYTOIN
     Dosage: 150 MG, 1X/DAY
     Route: 048
     Dates: start: 2005
  12. INDOMETHACIN [Concomitant]
     Active Substance: INDOMETHACIN
     Dosage: 25 MG, 3X/DAY
     Route: 048
  13. METFORMIN [Concomitant]
     Active Substance: METFORMIN HYDROCHLORIDE
     Dosage: 500 MG, 2X/DAY
     Route: 048
     Dates: start: 2016
  14. PREDNISONE [Concomitant]
     Active Substance: PREDNISONE
     Dosage: 15MG, 1X/DAY
     Route: 065

REACTIONS (7)
  - Localised infection [Not Recovered/Not Resolved]
  - Immunosuppression [Unknown]
  - Blood pressure fluctuation [Unknown]
  - Blood pressure systolic increased [Unknown]
  - Off label use [Unknown]
  - Off label use [Unknown]
  - Inappropriate schedule of product administration [Unknown]

NARRATIVE: CASE EVENT DATE: 20211228
